FAERS Safety Report 7480694-7 (Version None)
Quarter: 2011Q2

REPORT INFORMATION
  Report Type: 
  Country: None (occurrence: None)
  Receive Date: 20110512
  Receipt Date: 20110512
  Transmission Date: 20111010
  Serious: No
  Sender: FDA-Public Use
  Company Number: None

PATIENT
  Age: 80 Year
  Sex: Female
  Weight: 47.6277 kg

DRUGS (3)
  1. RIFAMPIN [Concomitant]
  2. CLARITHROMYCIN [Concomitant]
  3. MYAMBUTOL [Suspect]
     Indication: MYCOBACTERIUM AVIUM COMPLEX INFECTION
     Dosage: 400MG 2X/DAY PO
     Route: 048
     Dates: start: 20100601, end: 20110505

REACTIONS (2)
  - VISUAL ACUITY REDUCED [None]
  - OCULAR TOXICITY [None]
